FAERS Safety Report 8995817 (Version 3)
Quarter: 2013Q1

REPORT INFORMATION
  Report Type: Spontaneous
  Country: BR (occurrence: BR)
  Receive Date: 20130103
  Receipt Date: 20130305
  Transmission Date: 20140127
  Serious: Yes (Other)
  Sender: FDA-Public Use
  Company Number: PHHY2012BR121018

PATIENT
  Sex: Male
  Weight: 60 kg

DRUGS (4)
  1. FORASEQ [Suspect]
     Indication: ASTHMA
     Dosage: 1 DF OF EACH TREATMENT, BID
  2. NOTUSS [Concomitant]
     Indication: COUGH
     Dosage: 3 TABLESPOONS, TID
     Route: 048
  3. BEMINAL C [Concomitant]
     Indication: ASTHENIA
     Dosage: 1 DF, QD
     Route: 048
  4. NAVOTRAX [Concomitant]
     Indication: SLEEP DISORDER
     Dosage: 0.5 DF, DAILY
     Route: 048

REACTIONS (2)
  - Laryngeal cancer [Not Recovered/Not Resolved]
  - Dyspnoea [Not Recovered/Not Resolved]
